FAERS Safety Report 7038424-9 (Version None)
Quarter: 2010Q4

REPORT INFORMATION
  Report Type: 
  Country: None (occurrence: None)
  Receive Date: 20101011
  Receipt Date: 20100517
  Transmission Date: 20110411
  Serious: No
  Sender: FDA-Public Use
  Company Number: US-PFIZER INC-2010062996

PATIENT
  Sex: Male
  Weight: 83.9 kg

DRUGS (8)
  1. NEURONTIN [Suspect]
  2. MORPHINE SULFATE [Concomitant]
  3. OXYCODONE [Concomitant]
  4. ATENOLOL [Concomitant]
  5. TRAZODONE [Concomitant]
  6. PANTOPRAZOLE [Concomitant]
  7. FINASTERIDE [Concomitant]
  8. ACETYLSALICYLIC ACID [Concomitant]
     Dosage: 81 MG, UNK

REACTIONS (2)
  - DRUG HYPERSENSITIVITY [None]
  - MEMORY IMPAIRMENT [None]
